FAERS Safety Report 19792827 (Version 1)
Quarter: 2021Q3

REPORT INFORMATION
  Report Type: Spontaneous
  Country: JP (occurrence: JP)
  Receive Date: 20210906
  Receipt Date: 20210906
  Transmission Date: 20211014
  Serious: Yes (Other)
  Sender: FDA-Public Use
  Company Number: JP-PFIZER INC-202101091760

PATIENT
  Age: 59 Year
  Sex: Male

DRUGS (1)
  1. XELJANZ [Suspect]
     Active Substance: TOFACITINIB CITRATE
     Dosage: 10 MG, DAILY
     Route: 048
     Dates: start: 202104

REACTIONS (7)
  - Colitis ulcerative [Not Recovered/Not Resolved]
  - Cytomegalovirus infection [Unknown]
  - Haematochezia [Unknown]
  - Frequent bowel movements [Unknown]
  - Erythema [Not Recovered/Not Resolved]
  - Epstein-Barr virus infection [Unknown]
  - Pyrexia [Not Recovered/Not Resolved]

NARRATIVE: CASE EVENT DATE: 202107
